FAERS Safety Report 12923000 (Version 1)
Quarter: 2016Q4

REPORT INFORMATION
  Report Type: Spontaneous
  Country: BE (occurrence: BE)
  Receive Date: 20161109
  Receipt Date: 20161109
  Transmission Date: 20170207
  Serious: Yes (Other)
  Sender: FDA-Public Use
  Company Number: BE-GLAXOSMITHKLINE-BE2016GSK165207

PATIENT
  Age: 18 Year
  Sex: Male

DRUGS (1)
  1. IMITREX [Suspect]
     Active Substance: SUMATRIPTAN SUCCINATE
     Indication: PRODUCT USED FOR UNKNOWN INDICATION
     Dosage: 1 INJECTION / UNIQUE OR CHRONIQUE USE? UNIQUE
     Route: 058

REACTIONS (3)
  - Dizziness [Unknown]
  - Headache [Unknown]
  - Malaise [Unknown]
